FAERS Safety Report 25958012 (Version 1)
Quarter: 2025Q4

REPORT INFORMATION
  Report Type: Spontaneous
  Country: US (occurrence: US)
  Receive Date: 20251024
  Receipt Date: 20251024
  Transmission Date: 20260119
  Serious: No
  Sender: MILLICENT HOLDINGS
  Company Number: US-Millicent Holdings Ltd.-MILL20250304

PATIENT
  Age: 78 Year
  Sex: Female

DRUGS (2)
  1. FEMRING [Suspect]
     Active Substance: ESTRADIOL ACETATE
     Indication: Menopausal symptoms
     Dosage: 0.05 MG/DAY, 1 RING EVERY 3 MONTHS.
     Route: 067
  2. FEMRING [Suspect]
     Active Substance: ESTRADIOL ACETATE
     Dosage: 0.05 MG/DAY, 1 RING EVERY 3 MONTHS
     Route: 067

REACTIONS (3)
  - Therapeutic product effect decreased [Not Recovered/Not Resolved]
  - Hot flush [Not Recovered/Not Resolved]
  - Mood altered [Not Recovered/Not Resolved]
